FAERS Safety Report 9017540 (Version 1)
Quarter: 2013Q1

REPORT INFORMATION
  Report Type: Spontaneous
  Country: US (occurrence: US)
  Receive Date: 20130117
  Receipt Date: 20130117
  Transmission Date: 20140127
  Serious: Yes (Other)
  Sender: FDA-Public Use
  Company Number: US-PFIZER INC-2013018550

PATIENT
  Age: 17 Year
  Sex: Female

DRUGS (7)
  1. ZIPRASIDONE HCL [Suspect]
     Indication: BIPOLAR DISORDER
     Dosage: 60 MG, 2X/DAY
  2. ZIPRASIDONE HCL [Suspect]
     Dosage: 20 MG, 2X/DAY
  3. ZIPRASIDONE HCL [Suspect]
     Dosage: 20 MG, 1X/DAY, AT NIGHT
  4. LITHIUM [Concomitant]
     Dosage: 1050 MG, DAILY
  5. SERTRALINE [Concomitant]
     Dosage: 75 MG, DAILY
  6. LORAZEPAM [Concomitant]
     Indication: ANXIETY
     Dosage: 1 MG, AS NEEDED
  7. BUPROPION XL [Concomitant]
     Dosage: 300 MG, DAILY

REACTIONS (6)
  - Drug withdrawal syndrome [Recovered/Resolved]
  - Hallucination, visual [Recovered/Resolved]
  - Hallucination, tactile [Recovered/Resolved]
  - Nausea [Recovered/Resolved]
  - Dizziness [Recovered/Resolved]
  - Insomnia [Recovered/Resolved]
